FAERS Safety Report 17353783 (Version 2)
Quarter: 2020Q1

REPORT INFORMATION
  Report Type: Spontaneous
  Country: US (occurrence: US)
  Receive Date: 20200131
  Receipt Date: 20200206
  Transmission Date: 20200409
  Serious: No
  Sender: FDA-Public Use
  Company Number: US-ELI_LILLY_AND_COMPANY-US202001010726

PATIENT
  Age: 61 Year
  Sex: Female

DRUGS (1)
  1. TRULICITY [Suspect]
     Active Substance: DULAGLUTIDE
     Indication: PRODUCT USED FOR UNKNOWN INDICATION
     Dosage: UNK UNK, UNKNOWN
     Route: 065

REACTIONS (9)
  - Product dose omission [Unknown]
  - Abdominal distension [Unknown]
  - Malaise [Unknown]
  - Fatigue [Unknown]
  - Insomnia [Unknown]
  - Hot flush [Unknown]
  - Blood glucose abnormal [Unknown]
  - Confusional state [Unknown]
  - Fungal infection [Unknown]
